FAERS Safety Report 4947933-5 (Version None)
Quarter: 2006Q1

REPORT INFORMATION
  Report Type: 
  Country: None (occurrence: None)
  Receive Date: 20060314
  Receipt Date: 20060223
  Transmission Date: 20060701
  Serious: Yes (Hospitalization)
  Sender: FDA-Public Use
  Company Number: US200602004975

PATIENT
  Age: 4 Year
  Sex: Male

DRUGS (3)
  1. HUMATROPE [Suspect]
     Dosage: 6 MG
     Dates: start: 20040401
  2. HUMATROPEN [Concomitant]
  3. LEVOTHYROXINE SODIUM [Concomitant]

REACTIONS (4)
  - ANOREXIA [None]
  - DEHYDRATION [None]
  - MEDICAL DEVICE COMPLICATION [None]
  - PHARMACEUTICAL PRODUCT COMPLAINT [None]
